FAERS Safety Report 12820520 (Version 2)
Quarter: 2017Q2

REPORT INFORMATION
  Report Type: Spontaneous
  Country: US (occurrence: US)
  Receive Date: 20161007
  Receipt Date: 20170509
  Transmission Date: 20170830
  Serious: Yes (Other)
  Sender: FDA-Public Use
  Company Number: US-CELGENEUS-USA-2016100661

PATIENT
  Age: 21 Year
  Sex: Female

DRUGS (16)
  1. PENICILLIN VK [Concomitant]
     Active Substance: PENICILLIN V POTASSIUM
     Indication: PROPHYLAXIS
     Dosage: 1000 MILLIGRAM
     Route: 048
     Dates: start: 20160407
  2. POMALYST [Suspect]
     Active Substance: POMALIDOMIDE
     Indication: GRAFT VERSUS HOST DISEASE
     Dosage: .5 MILLIGRAM
     Route: 048
     Dates: start: 20160512, end: 20160525
  3. LOVENOX [Concomitant]
     Active Substance: ENOXAPARIN SODIUM
     Indication: PROPHYLAXIS
     Dosage: 40 MILLIGRAM
     Route: 058
     Dates: start: 20160512
  4. POSACONAZOLE [Concomitant]
     Active Substance: POSACONAZOLE
     Indication: PROPHYLAXIS
     Dosage: 300 MILLIGRAM
     Route: 048
     Dates: start: 20160407
  5. POMALYST [Suspect]
     Active Substance: POMALIDOMIDE
     Dosage: 2 MILLIGRAM
     Route: 048
     Dates: start: 20160623, end: 20160928
  6. POMALYST [Suspect]
     Active Substance: POMALIDOMIDE
     Dosage: 1.5 MILLIGRAM
     Route: 048
     Dates: start: 20160609, end: 20160622
  7. POMALYST [Suspect]
     Active Substance: POMALIDOMIDE
     Dosage: 1.5 MILLIGRAM
     Route: 048
     Dates: start: 20161013
  8. PREDNISONE. [Concomitant]
     Active Substance: PREDNISONE
     Indication: IMMUNOSUPPRESSION
     Dosage: 20 MILLIGRAM
     Route: 048
     Dates: start: 20160407
  9. URSODIOL. [Concomitant]
     Active Substance: URSODIOL
     Indication: PROPHYLAXIS
     Dosage: 600 MILLIGRAM
     Route: 048
     Dates: start: 20160512
  10. SIROLIMUS. [Concomitant]
     Active Substance: SIROLIMUS
     Indication: IMMUNOSUPPRESSION
     Dosage: .5 MILLIGRAM
     Route: 048
     Dates: start: 20160407
  11. ETONOGESTREL-ETHINYL ESTRADIOL [Concomitant]
     Indication: CONTRACEPTION
     Route: 067
  12. OMEPRAZOLE. [Concomitant]
     Active Substance: OMEPRAZOLE
     Indication: GASTROOESOPHAGEAL REFLUX DISEASE
     Dosage: 20 MILLIGRAM
     Route: 048
     Dates: start: 20160407
  13. CANDESARTAN. [Concomitant]
     Active Substance: CANDESARTAN
     Indication: HYPERTENSION
     Dosage: 4 MILLIGRAM
     Route: 048
     Dates: start: 20160512
  14. POMALYST [Suspect]
     Active Substance: POMALIDOMIDE
     Dosage: 1 MILLIGRAM
     Route: 048
     Dates: start: 20160526, end: 20160608
  15. ACYCLOVIR. [Concomitant]
     Active Substance: ACYCLOVIR
     Indication: PROPHYLAXIS
     Dosage: 800 MILLIGRAM
     Route: 048
     Dates: start: 20160407
  16. BACTRIM [Concomitant]
     Active Substance: SULFAMETHOXAZOLE\TRIMETHOPRIM
     Indication: PROPHYLAXIS
     Dosage: 400MG/80MG
     Route: 048
     Dates: start: 20160407

REACTIONS (2)
  - Upper respiratory tract infection [Unknown]
  - Neutropenia [Recovered/Resolved]

NARRATIVE: CASE EVENT DATE: 20160929
